FAERS Safety Report 25837743 (Version 1)
Quarter: 2025Q3

REPORT INFORMATION
  Report Type: Report from Study
  Country: EU (occurrence: EU)
  Receive Date: 20250923
  Receipt Date: 20250923
  Transmission Date: 20251020
  Serious: Yes (Hospitalization, Other)
  Sender: ABBVIE
  Company Number: EU-ABBVIE-6356112

PATIENT
  Age: 75 Year
  Sex: Female

DRUGS (3)
  1. CARBIDOPA\LEVODOPA [Suspect]
     Active Substance: CARBIDOPA\LEVODOPA
     Indication: Parkinson^s disease
     Route: 050
  2. CARBIDOPA\LEVODOPA [Suspect]
     Active Substance: CARBIDOPA\LEVODOPA
     Route: 050
     Dates: start: 20171010
  3. PRAMIPEXOLE [Concomitant]
     Active Substance: PRAMIPEXOLE
     Indication: Product used for unknown indication

REACTIONS (12)
  - Aphasia [Recovering/Resolving]
  - Parkinson^s disease [Not Recovered/Not Resolved]
  - Tension [Not Recovered/Not Resolved]
  - Stoma site erythema [Unknown]
  - Somnolence [Recovering/Resolving]
  - Fall [Recovered/Resolved]
  - Dyskinesia [Not Recovered/Not Resolved]
  - Stoma site reaction [Unknown]
  - Faeces hard [Not Recovered/Not Resolved]
  - Delirium [Not Recovered/Not Resolved]
  - Faecal volume decreased [Not Recovered/Not Resolved]
  - Cerebrospinal fluid leakage [Recovered/Resolved]

NARRATIVE: CASE EVENT DATE: 20250801
